FAERS Safety Report 4360491-1 (Version None)
Quarter: 2004Q2

REPORT INFORMATION
  Report Type: 
  Country: None (occurrence: None)
  Receive Date: 20040514
  Receipt Date: 20040427
  Transmission Date: 20050107
  Serious: Yes (Hospitalization)
  Sender: FDA-Public Use
  Company Number: 195110

PATIENT
  Age: 63 Year
  Sex: Female
  Weight: 70.3075 kg

DRUGS (14)
  1. AVONEX [Suspect]
     Indication: MULTIPLE SCLEROSIS
     Dosage: 30 MCG QW IM
     Route: 030
     Dates: start: 20010624, end: 20030901
  2. AVONEX [Suspect]
     Indication: MULTIPLE SCLEROSIS
     Dosage: 30 MCG QW IM
     Route: 030
     Dates: start: 20030901
  3. LEXAPRO [Concomitant]
  4. BACLOFEN [Concomitant]
  5. DETROL [Concomitant]
  6. PREVACID [Concomitant]
  7. BUSPIRONE [Concomitant]
  8. METOCLOPRAMIDE [Concomitant]
  9. BURPROPION [Concomitant]
  10. METOPROLOL [Concomitant]
  11. OS-CAL D [Concomitant]
  12. LISINOPRIL [Concomitant]
  13. AZATHIOPRINE [Concomitant]
  14. LEVOXYL [Concomitant]

REACTIONS (6)
  - AMNESIA [None]
  - DIFFICULTY IN WALKING [None]
  - GASTRIC ULCER HAEMORRHAGE [None]
  - HYPERPARATHYROIDISM [None]
  - MUSCULAR WEAKNESS [None]
  - PNEUMONIA [None]
